FAERS Safety Report 6557234-X (Version None)
Quarter: 2010Q1

REPORT INFORMATION
  Report Type: 
  Country: None (occurrence: None)
  Receive Date: 20100129
  Receipt Date: 20100120
  Transmission Date: 20100710
  Serious: Yes (Other)
  Sender: FDA-Public Use
  Company Number: US-RB-001583-10

PATIENT
  Sex: Female

DRUGS (1)
  1. MUCINEX DM [Suspect]
     Dosage: TAKEN ONCE
     Route: 048
     Dates: start: 20091231

REACTIONS (4)
  - FACE OEDEMA [None]
  - FEELING ABNORMAL [None]
  - LOCAL SWELLING [None]
  - URTICARIA [None]
